FAERS Safety Report 18391684 (Version 1)
Quarter: 2020Q4

REPORT INFORMATION
  Report Type: Other
  Country: GB (occurrence: GB)
  Receive Date: 20201016
  Receipt Date: 20201016
  Transmission Date: 20210114
  Serious: Yes (Hospitalization)
  Sender: FDA-Public Use
  Company Number: GB-ROCHE-2691147

PATIENT
  Sex: Female

DRUGS (1)
  1. ESBRIET [Suspect]
     Active Substance: PIRFENIDONE
     Indication: PRODUCT USED FOR UNKNOWN INDICATION
     Route: 048

REACTIONS (7)
  - Weight decreased [Unknown]
  - Fall [Unknown]
  - Decreased appetite [Unknown]
  - Blood sodium decreased [Unknown]
  - Pulmonary haemorrhage [Unknown]
  - Rib fracture [Unknown]
  - Oxygen saturation decreased [Unknown]
